FAERS Safety Report 9251903 (Version 2)
Quarter: 2013Q3

REPORT INFORMATION
  Report Type: Spontaneous
  Country: CA (occurrence: CA)
  Receive Date: 20130424
  Receipt Date: 20130722
  Transmission Date: 20140515
  Serious: Yes (Death, Life-Threatening)
  Sender: FDA-Public Use
  Company Number: CA-SANOFI-AVENTIS-2013SA038823

PATIENT
  Age: 71 Year
  Sex: Male
  Weight: 74.2 kg

DRUGS (2)
  1. JEVTANA [Suspect]
     Indication: PROSTATE CANCER METASTATIC
     Dosage: FORM: SOLUTION INTRAVENOUS?STRENGTH:60MG/1.5ML
     Route: 042
     Dates: start: 2012, end: 2012
  2. ZOLEDRONIC ACID [Concomitant]

REACTIONS (6)
  - Acute respiratory distress syndrome [Fatal]
  - Hyperkalaemia [Fatal]
  - Neutropenic sepsis [Fatal]
  - Renal failure acute [Fatal]
  - Asthenia [Unknown]
  - Nausea [Unknown]
